FAERS Safety Report 10252287 (Version 1)
Quarter: 2014Q2

REPORT INFORMATION
  Report Type: Spontaneous
  Country: US (occurrence: US)
  Receive Date: 20140623
  Receipt Date: 20140623
  Transmission Date: 20141212
  Serious: No
  Sender: FDA-Public Use
  Company Number: US-PFIZER INC-2014166641

PATIENT
  Age: 75 Year
  Sex: Female
  Weight: 71.66 kg

DRUGS (4)
  1. LYRICA [Suspect]
     Indication: FIBROMYALGIA
     Dosage: 100 MG, 2X/DAY
     Route: 048
  2. CYMBALTA [Concomitant]
     Indication: DEPRESSION
     Dosage: UNK
  3. CYMBALTA [Concomitant]
     Indication: FIBROMYALGIA
  4. ATENOLOL [Concomitant]
     Indication: BLOOD PRESSURE SYSTOLIC INCREASED
     Dosage: UNK

REACTIONS (1)
  - Neuralgia [Unknown]
